FAERS Safety Report 8362868-6 (Version None)
Quarter: 2012Q2

REPORT INFORMATION
  Report Type: 
  Country: None (occurrence: None)
  Receive Date: 20120516
  Receipt Date: 20120512
  Transmission Date: 20120825
  Serious: Yes (Death, Hospitalization)
  Sender: FDA-Public Use
  Company Number: PHHY2012MX003313

PATIENT
  Sex: Female

DRUGS (4)
  1. COMPLEJO B [Concomitant]
     Indication: DIABETIC NEUROPATHY
  2. INSULIN [Concomitant]
     Indication: DIABETES MELLITUS
     Dosage: 20 IU, BID (20 IU IN THE MORNING/20 IU AT NIGHT)
  3. ANALGESICS [Concomitant]
     Indication: DIABETIC NEUROPATHY
  4. ZOLEDRONOC ACID [Suspect]
     Indication: OSTEOPOROSIS
     Dosage: 5 MG, YEARLY
     Route: 042
     Dates: start: 20110511

REACTIONS (3)
  - CEREBRAL HAEMORRHAGE [None]
  - PERIPHERAL NERVE LESION [None]
  - DIABETES MELLITUS [None]
